FAERS Safety Report 7948993-X (Version None)
Quarter: 2011Q4

REPORT INFORMATION
  Report Type: 
  Country: None (occurrence: None)
  Receive Date: 20111130
  Receipt Date: 20111125
  Transmission Date: 20120403
  Serious: Yes (Hospitalization)
  Sender: FDA-Public Use
  Company Number: FR-PFIZER INC-2011287998

PATIENT
  Age: 45 Year
  Sex: Female

DRUGS (7)
  1. PIPERACILLIN AND TAZOBACTAM [Suspect]
     Indication: LUNG DISORDER
     Dosage: UNK
     Dates: start: 20110731, end: 20110812
  2. GENTAMICIN SULFATE [Suspect]
     Indication: SEPSIS
     Dosage: UNK
     Dates: start: 20110725, end: 20110804
  3. LEVOFLOXACIN [Suspect]
     Indication: NASOPHARYNGITIS
     Dosage: UNK
     Dates: start: 20110714, end: 20110722
  4. LOVENOX [Suspect]
     Indication: THROMBOSIS
     Dosage: UNK
     Route: 058
     Dates: start: 20110726, end: 20110808
  5. TARGOCID [Suspect]
     Indication: SEPSIS
     Dosage: 600 MG, 2X/DAY
     Dates: start: 20110725, end: 20110803
  6. OXYCODONE HCL [Suspect]
     Indication: PAIN
     Dosage: 5 MG DAILY
     Route: 048
     Dates: start: 20110726
  7. HYDROXYZINE HYDROCHLORIDE [Concomitant]
     Indication: ANXIETY
     Dosage: 150 MG DAILY
     Route: 048
     Dates: start: 20110731

REACTIONS (1)
  - DRUG RASH WITH EOSINOPHILIA AND SYSTEMIC SYMPTOMS [None]
